FAERS Safety Report 21678331 (Version 2)
Quarter: 2022Q4

REPORT INFORMATION
  Report Type: Spontaneous
  Country: NL (occurrence: NL)
  Receive Date: 20221203
  Receipt Date: 20221213
  Transmission Date: 20230113
  Serious: Yes (Life-Threatening, Hospitalization)
  Sender: FDA-Public Use
  Company Number: NL-SYNTHON BV-IN51PV22_66934

PATIENT
  Sex: Female
  Weight: 96 kg

DRUGS (4)
  1. CLOZAPINE [Suspect]
     Active Substance: CLOZAPINE
     Indication: Antipsychotic therapy
     Dosage: 100 MG, (1 X PER DAY 1.5 PIECE)
     Route: 065
     Dates: start: 20080101, end: 20220831
  2. FLUCONAZOLE [Suspect]
     Active Substance: FLUCONAZOLE
     Indication: Fungal infection
     Dosage: 50 MG, (1 X PER DAY 2)
     Route: 065
     Dates: start: 20220822
  3. AZITHROMYCIN [Suspect]
     Active Substance: AZITHROMYCIN
     Indication: Oropharyngeal pain
     Dosage: 500 MG, QD, (250 MILLIGRAM, BID, 2 X DAILY)
     Route: 065
     Dates: start: 20220820, end: 20220827
  4. METAMIZOLE [Suspect]
     Active Substance: METAMIZOLE
     Indication: Pain
     Dosage: 500 MG, (4X PER DAY 2)
     Route: 065
     Dates: start: 20220617, end: 20220831

REACTIONS (1)
  - Agranulocytosis [Recovered/Resolved]
